FAERS Safety Report 21510147 (Version 2)
Quarter: 2022Q4

REPORT INFORMATION
  Report Type: Spontaneous
  Country: JP (occurrence: JP)
  Receive Date: 20221026
  Receipt Date: 20221221
  Transmission Date: 20230113
  Serious: Yes (Hospitalization)
  Sender: FDA-Public Use
  Company Number: JP-Eisai-202209539_LEN-EC_P_1

PATIENT
  Age: 67 Year
  Sex: Female
  Weight: 67 kg

DRUGS (10)
  1. LENVIMA [Suspect]
     Active Substance: LENVATINIB
     Indication: Endometrial cancer
     Route: 048
     Dates: start: 20220927, end: 20221012
  2. LENVIMA [Suspect]
     Active Substance: LENVATINIB
     Route: 048
     Dates: start: 20221028, end: 20221102
  3. LENVIMA [Suspect]
     Active Substance: LENVATINIB
     Route: 048
     Dates: start: 20221110, end: 20221115
  4. LENVIMA [Suspect]
     Active Substance: LENVATINIB
     Route: 048
     Dates: start: 20221123, end: 20221207
  5. KEYTRUDA [Suspect]
     Active Substance: PEMBROLIZUMAB
     Indication: Endometrial cancer
     Route: 041
     Dates: start: 20220927
  6. METHYLCOBALAMIN [Concomitant]
     Active Substance: METHYLCOBALAMIN
     Indication: Neuropathy peripheral
     Route: 048
     Dates: start: 20220218
  7. HERBALS [Concomitant]
     Active Substance: HERBALS
     Indication: Neuropathy peripheral
     Route: 048
     Dates: start: 20220218
  8. NIFEDIPINE [Concomitant]
     Active Substance: NIFEDIPINE
     Indication: Hypertension
     Route: 048
     Dates: start: 20221012
  9. CANDESARTAN [Concomitant]
     Active Substance: CANDESARTAN
     Indication: Hypertension
     Route: 048
     Dates: start: 20220927, end: 20221011
  10. CANDESARTAN [Concomitant]
     Active Substance: CANDESARTAN
     Route: 048
     Dates: start: 20221012

REACTIONS (3)
  - Thrombocytopenia [Recovering/Resolving]
  - Hypertension [Recovering/Resolving]
  - Headache [Unknown]

NARRATIVE: CASE EVENT DATE: 20221005
